FAERS Safety Report 19591248 (Version 1)
Quarter: 2021Q3

REPORT INFORMATION
  Report Type: Report from Study
  Country: ES (occurrence: ES)
  Receive Date: 20210721
  Receipt Date: 20210721
  Transmission Date: 20211014
  Serious: Yes (Other)
  Sender: FDA-Public Use
  Company Number: ES-TAKEDA-ES202031714

PATIENT
  Age: 1 Year
  Sex: Male

DRUGS (12)
  1. TAUROLIDINE [Concomitant]
     Active Substance: TAUROLIDINE
     Indication: DEVICE RELATED SEPSIS
  2. TEDUGLUTIDE [Suspect]
     Active Substance: TEDUGLUTIDE
     Indication: SHORT-BOWEL SYNDROME
     Dosage: 0.5 MILLIGRAM (DAILY DOSE 0.05 MG/KG), OTHER (TED DOSES PER WEEK 7)
     Route: 065
     Dates: start: 20200813
  3. METRONIDAZOLE. [Concomitant]
     Active Substance: METRONIDAZOLE
     Indication: PROPHYLAXIS
  4. TEDUGLUTIDE [Suspect]
     Active Substance: TEDUGLUTIDE
     Indication: SHORT-BOWEL SYNDROME
     Dosage: 0.5 MILLIGRAM (DAILY DOSE 0.05 MG/KG), OTHER (TED DOSES PER WEEK 7)
     Route: 065
     Dates: start: 20200813
  5. TEDUGLUTIDE [Suspect]
     Active Substance: TEDUGLUTIDE
     Dosage: 0.500 MILLIGRAM (0.0500 MG/KG), QD
     Route: 065
     Dates: start: 20200813
  6. TEDUGLUTIDE [Suspect]
     Active Substance: TEDUGLUTIDE
     Dosage: 0.500 MILLIGRAM (0.0500 MG/KG), QD
     Route: 065
     Dates: start: 20200813
  7. CHOLESTYRAMINE. [Concomitant]
     Active Substance: CHOLESTYRAMINE
     Indication: MALABSORPTION
  8. TEDUGLUTIDE [Suspect]
     Active Substance: TEDUGLUTIDE
     Dosage: 0.500 MILLIGRAM (0.0500 MG/KG), QD
     Route: 065
     Dates: start: 20200813
  9. TEDUGLUTIDE [Suspect]
     Active Substance: TEDUGLUTIDE
     Indication: SHORT-BOWEL SYNDROME
     Dosage: 0.5 MILLIGRAM (DAILY DOSE 0.05 MG/KG), OTHER (TED DOSES PER WEEK 7)
     Route: 065
     Dates: start: 20200813
  10. TEDUGLUTIDE [Suspect]
     Active Substance: TEDUGLUTIDE
     Indication: SHORT-BOWEL SYNDROME
     Dosage: 0.5 MILLIGRAM (DAILY DOSE 0.05 MG/KG), OTHER (TED DOSES PER WEEK 7)
     Route: 065
     Dates: start: 20200813
  11. TEDUGLUTIDE [Suspect]
     Active Substance: TEDUGLUTIDE
     Dosage: 0.500 MILLIGRAM (0.0500 MG/KG), QD
     Route: 065
     Dates: start: 20200813
  12. LOPERAMIDE [Concomitant]
     Active Substance: LOPERAMIDE
     Indication: DIARRHOEA
     Dosage: 0.80 MILLIGRAM, TID
     Route: 048
     Dates: start: 20210216

REACTIONS (5)
  - Nasopharyngitis [Recovered/Resolved]
  - Diarrhoea [Recovered/Resolved]
  - Haematochezia [Recovered/Resolved]
  - Cyanosis [Recovered/Resolved]
  - Device occlusion [Recovered/Resolved]

NARRATIVE: CASE EVENT DATE: 20200902
